FAERS Safety Report 9941590 (Version 1)
Quarter: 2014Q1

REPORT INFORMATION
  Report Type: Report from Study
  Country: US (occurrence: US)
  Receive Date: 20140303
  Receipt Date: 20140303
  Transmission Date: 20141002
  Serious: No
  Sender: FDA-Public Use
  Company Number: US-ABBVIE-13P-163-1043615-00

PATIENT
  Age: 61 Year
  Sex: Female

DRUGS (5)
  1. HUMIRA [Suspect]
     Indication: PSORIATIC ARTHROPATHY
     Dates: start: 20121108
  2. LISINOPRIL [Concomitant]
     Indication: BLOOD PRESSURE
     Route: 048
  3. SERTRALINE [Concomitant]
     Indication: DEPRESSION
     Dosage: DAILY
     Route: 048
  4. INSULIN [Concomitant]
     Indication: PRODUCT USED FOR UNKNOWN INDICATION
     Dosage: IN AM
  5. INSULIN [Concomitant]
     Dosage: IN PM

REACTIONS (1)
  - Back pain [Recovering/Resolving]
